FAERS Safety Report 12825469 (Version 1)
Quarter: 2016Q4

REPORT INFORMATION
  Report Type: Spontaneous
  Country: US (occurrence: US)
  Receive Date: 20161007
  Receipt Date: 20161007
  Transmission Date: 20170207
  Serious: No
  Sender: FDA-Public Use
  Company Number: None

PATIENT
  Age: 79 Year
  Sex: Female

DRUGS (1)
  1. TYKERB [Suspect]
     Active Substance: LAPATINIB DITOSYLATE
     Indication: LUNG NEOPLASM MALIGNANT

REACTIONS (2)
  - Oral infection [None]
  - Post procedural infection [None]

NARRATIVE: CASE EVENT DATE: 20161006
